FAERS Safety Report 13745777 (Version 1)
Quarter: 2017Q3

REPORT INFORMATION
  Report Type: Spontaneous
  Country: US (occurrence: US)
  Receive Date: 20170712
  Receipt Date: 20170712
  Transmission Date: 20171127
  Serious: No
  Sender: FDA-Public Use
  Company Number: US-BAYER-2017-133106

PATIENT
  Age: 7 Year
  Sex: Male
  Weight: 24.94 kg

DRUGS (2)
  1. CLARITIN [Suspect]
     Active Substance: LORATADINE
     Indication: HYPERSENSITIVITY
     Dosage: 1 DF, QD
     Route: 048
     Dates: start: 201706
  2. CLARITIN [Suspect]
     Active Substance: LORATADINE
     Indication: NASOPHARYNGITIS

REACTIONS (4)
  - Allergy to chemicals [Unknown]
  - Feeling abnormal [Unknown]
  - Tremor [None]
  - Psychomotor hyperactivity [Unknown]

NARRATIVE: CASE EVENT DATE: 201706
